FAERS Safety Report 17745283 (Version 1)
Quarter: 2020Q2

REPORT INFORMATION
  Report Type: Spontaneous
  Country: CN (occurrence: CN)
  Receive Date: 20200505
  Receipt Date: 20200505
  Transmission Date: 20200714
  Serious: Yes (Life-Threatening, Other)
  Sender: FDA-Public Use
  Company Number: CN-PFIZER INC-2020177406

PATIENT
  Age: 47 Year
  Sex: Male
  Weight: 75 kg

DRUGS (1)
  1. METHYLPREDNISOLONE SODIUM SUCCINATE. [Suspect]
     Active Substance: METHYLPREDNISOLONE SODIUM SUCCINATE
     Indication: MYASTHENIA GRAVIS
     Dosage: 1 G, 1X/DAY
     Route: 041
     Dates: start: 20200419, end: 20200421

REACTIONS (9)
  - Product use in unapproved indication [Unknown]
  - Myasthenia gravis [Recovering/Resolving]
  - Dysarthria [Unknown]
  - Dyspnoea [Unknown]
  - Dysphagia [Unknown]
  - Asphyxia [Recovering/Resolving]
  - Oxygen saturation decreased [Recovering/Resolving]
  - Mental disorder [Unknown]
  - Off label use [Unknown]

NARRATIVE: CASE EVENT DATE: 20200419
